FAERS Safety Report 5240044-3 (Version None)
Quarter: 2007Q1

REPORT INFORMATION
  Report Type: 
  Country: None (occurrence: None)
  Receive Date: 20070216
  Receipt Date: 20070206
  Transmission Date: 20070707
  Serious: Yes (Hospitalization)
  Sender: FDA-Public Use
  Company Number: TH-PFIZER INC-2007008577

PATIENT
  Age: 50 Year
  Sex: Female

DRUGS (2)
  1. CELEBREX [Suspect]
     Indication: MYALGIA
     Route: 048
  2. CELEBREX [Suspect]
     Indication: ARTHRALGIA

REACTIONS (6)
  - ANAPHYLACTIC REACTION [None]
  - BLOOD PRESSURE DECREASED [None]
  - DIZZINESS [None]
  - DYSPNOEA [None]
  - PULMONARY CONGESTION [None]
  - VOMITING [None]
